FAERS Safety Report 24230237 (Version 1)
Quarter: 2024Q3

REPORT INFORMATION
  Report Type: Report from Study
  Country: US (occurrence: US)
  Receive Date: 20240820
  Receipt Date: 20240820
  Transmission Date: 20241017
  Serious: Yes (Other)
  Sender: ABBVIE
  Company Number: US-ABBVIE-5880990

PATIENT
  Age: 58 Year
  Sex: Male

DRUGS (4)
  1. SKYRIZI [Suspect]
     Active Substance: RISANKIZUMAB-RZAA
     Indication: Psoriasis
     Dosage: STRENGTH:150MG/ML WEEK 0
     Route: 058
     Dates: start: 20230619, end: 20230619
  2. SKYRIZI [Suspect]
     Active Substance: RISANKIZUMAB-RZAA
     Dosage: STRENGTH:150MG/ML WEEK 4
     Route: 058
     Dates: start: 20230719, end: 20230719
  3. SKYRIZI [Suspect]
     Active Substance: RISANKIZUMAB-RZAA
     Dosage: STRENGTH:150MG/ML
     Route: 058
     Dates: start: 2023, end: 2024
  4. SKYRIZI [Suspect]
     Active Substance: RISANKIZUMAB-RZAA
     Dosage: STRENGTH:150MG/ML
     Route: 058
     Dates: start: 20240808

REACTIONS (2)
  - Knee arthroplasty [Unknown]
  - Psoriasis [Unknown]

NARRATIVE: CASE EVENT DATE: 20240617
